FAERS Safety Report 13448994 (Version 1)
Quarter: 2017Q2

REPORT INFORMATION
  Report Type: Spontaneous
  Country: FR (occurrence: FR)
  Receive Date: 20170417
  Receipt Date: 20170417
  Transmission Date: 20170830
  Serious: Yes (Hospitalization, Other)
  Sender: FDA-Public Use
  Company Number: US-ASTRAZENECA-2017SE39269

PATIENT
  Age: 85 Year
  Sex: Male

DRUGS (5)
  1. AUGMENTIN [Suspect]
     Active Substance: AMOXICILLIN\CLAVULANATE POTASSIUM
     Indication: LUNG DISORDER
     Dosage: UNK
     Route: 048
     Dates: start: 20170309, end: 20170316
  2. ELIQUIS [Suspect]
     Active Substance: APIXABAN
     Indication: ATRIAL FIBRILLATION
     Dosage: 2.5 MG,1/D, UNK
     Route: 048
     Dates: start: 20170310, end: 20170316
  3. ELIQUIS [Suspect]
     Active Substance: APIXABAN
     Indication: CEREBROVASCULAR ACCIDENT PROPHYLAXIS
     Dosage: 2.5 MG,1/D, UNK
     Route: 048
     Dates: start: 20170310, end: 20170316
  4. INEXIUM [Suspect]
     Active Substance: ESOMEPRAZOLE
     Route: 048
     Dates: start: 20170310, end: 20170316
  5. DAFALGAN [Suspect]
     Active Substance: ACETAMINOPHEN
     Indication: LUNG DISORDER
     Dosage: UNK
     Route: 048
     Dates: start: 20170309, end: 20170316

REACTIONS (3)
  - Jaundice [Recovering/Resolving]
  - Hepatocellular injury [Recovering/Resolving]
  - Cholestasis [Recovering/Resolving]

NARRATIVE: CASE EVENT DATE: 20170316
